FAERS Safety Report 13121938 (Version 1)
Quarter: 2017Q1

REPORT INFORMATION
  Report Type: Spontaneous
  Country: US (occurrence: US)
  Receive Date: 20170116
  Receipt Date: 20170116
  Transmission Date: 20170428
  Serious: Yes (Hospitalization, Other)
  Sender: FDA-Public Use
  Company Number: None

PATIENT
  Age: 72 Year
  Sex: Female

DRUGS (1)
  1. HYOSCYAMINE SUB [Suspect]
     Active Substance: HYOSCYAMINE
     Dates: start: 20160729, end: 20160803

REACTIONS (2)
  - Product quality issue [None]
  - Poor quality drug administered [None]

NARRATIVE: CASE EVENT DATE: 20160804
